FAERS Safety Report 4832209-7 (Version None)
Quarter: 2005Q4

REPORT INFORMATION
  Report Type: 
  Country: None (occurrence: None)
  Receive Date: 20051118
  Receipt Date: 20050930
  Transmission Date: 20060501
  Serious: Yes (Hospitalization)
  Sender: FDA-Public Use
  Company Number: US-MERCK-0510USA00731

PATIENT
  Age: 79 Year
  Sex: Female
  Weight: 86 kg

DRUGS (25)
  1. VIOXX [Suspect]
     Route: 048
     Dates: start: 19991022, end: 20040810
  2. ACETAMINOPHEN AND CODEINE [Concomitant]
     Route: 065
  3. ASPIRIN [Concomitant]
     Route: 065
  4. ASPIRIN [Concomitant]
     Route: 065
  5. CEPHALEXIN [Concomitant]
     Route: 065
  6. DIAZEPAM [Concomitant]
     Route: 065
  7. ISOSORBIDE MONONITRATE [Concomitant]
     Route: 065
  8. LEVOXYL [Concomitant]
     Route: 065
  9. LIPITOR [Concomitant]
     Route: 065
  10. LISINOPRIL [Concomitant]
     Route: 065
  11. LOTENSIN [Concomitant]
     Route: 065
  12. MECLIZINE [Concomitant]
     Route: 065
  13. METOPROLOL TARTRATE [Concomitant]
     Route: 065
  14. MIRALAX [Concomitant]
     Route: 065
  15. NITROQUICK [Concomitant]
     Route: 065
  16. PREVACID [Concomitant]
     Route: 065
  17. PROMETHAZINE [Concomitant]
     Route: 065
  18. QUININE SULFATE [Concomitant]
     Route: 065
  19. SUCRALFATE [Concomitant]
     Route: 065
  20. THIAMINE [Concomitant]
     Route: 065
  21. TIMOLOL MALEATE [Concomitant]
     Route: 065
  22. TRANSDERM-NITRO [Concomitant]
     Route: 065
  23. ZESTRIL [Concomitant]
     Route: 065
  24. TRIAMTERENE [Concomitant]
     Route: 065
  25. ZITHROMAX [Concomitant]
     Route: 065

REACTIONS (1)
  - MYOCARDIAL INFARCTION [None]
